FAERS Safety Report 8546559-4 (Version None)
Quarter: 2012Q3

REPORT INFORMATION
  Report Type: 
  Country: None (occurrence: None)
  Receive Date: 20120727
  Receipt Date: 20111223
  Transmission Date: 20120928
  Serious: No
  Sender: FDA-Public Use
  Company Number: US-ASTRAZENECA-2011SE78178

PATIENT
  Sex: Female

DRUGS (1)
  1. SEROQUEL [Suspect]
     Route: 048

REACTIONS (5)
  - INSOMNIA [None]
  - VOMITING [None]
  - HOT FLUSH [None]
  - DYSPEPSIA [None]
  - DIZZINESS [None]
